FAERS Safety Report 10461239 (Version 1)
Quarter: 2014Q3

REPORT INFORMATION
  Report Type: Spontaneous
  Country: US (occurrence: None)
  Receive Date: 20140917
  Receipt Date: 20140917
  Transmission Date: 20150326
  Serious: Yes (Hospitalization)
  Sender: FDA-Public Use
  Company Number: None

PATIENT
  Age: 74 Year
  Sex: Male
  Weight: 89.7 kg

DRUGS (1)
  1. TRAMADOL 50 MG [Suspect]
     Active Substance: TRAMADOL
     Indication: PAIN
     Route: 048

REACTIONS (6)
  - Drug administration error [None]
  - Confusional state [None]
  - Aggression [None]
  - Delirium [None]
  - Memory impairment [None]
  - Delusion [None]

NARRATIVE: CASE EVENT DATE: 20140909
